FAERS Safety Report 9056790 (Version 1)
Quarter: 2013Q1

REPORT INFORMATION
  Report Type: Spontaneous
  Country: FR (occurrence: FR)
  Receive Date: 20130201
  Receipt Date: 20130201
  Transmission Date: 20140127
  Serious: Yes (Death)
  Sender: FDA-Public Use
  Company Number: FR-PFIZER INC-A105570

PATIENT
  Age: 89 Year
  Sex: Female

DRUGS (4)
  1. TRIFLUCAN [Suspect]
     Dosage: 50 MG, UNK
     Route: 048
     Dates: start: 20000904, end: 20001123
  2. STILNOX [Suspect]
     Dosage: 10 MG, DAILY
     Route: 048
  3. DOCUSATE [Suspect]
     Indication: CONSTIPATION
     Dosage: UNK
     Route: 048
  4. DEROXAT [Suspect]
     Indication: DYSTHYMIC DISORDER
     Dosage: 20 MG, UNK
     Route: 048

REACTIONS (4)
  - Haemorrhage intracranial [Fatal]
  - Depressed level of consciousness [Fatal]
  - Ecchymosis [Fatal]
  - Rectal haemorrhage [Fatal]
